FAERS Safety Report 16974925 (Version 1)
Quarter: 2019Q4

REPORT INFORMATION
  Report Type: Report from Study
  Country: CA (occurrence: CA)
  Receive Date: 20191030
  Receipt Date: 20191030
  Transmission Date: 20200122
  Serious: Yes (Other)
  Sender: FDA-Public Use
  Company Number: CA-BAYER-2018-179947

PATIENT
  Age: 64 Year
  Sex: Female

DRUGS (3)
  1. VITAMINS NOS [Concomitant]
     Active Substance: VITAMINS
     Dosage: UNK
  2. VITAMIN D [VITAMIN D NOS] [Concomitant]
     Active Substance: VITAMIN D NOS
     Dosage: UNK
  3. BETASERON [Suspect]
     Active Substance: INTERFERON BETA-1B
     Indication: MULTIPLE SCLEROSIS
     Dosage: 0.25 MG, UNK
     Dates: start: 19990716, end: 201906

REACTIONS (7)
  - Scar [Not Recovered/Not Resolved]
  - Lack of injection site rotation [None]
  - Influenza like illness [Unknown]
  - Cellulitis [Unknown]
  - Incorrect dose administered [None]
  - Injection site extravasation [None]
  - Injection site reaction [Unknown]
